FAERS Safety Report 5023261-7 (Version None)
Quarter: 2006Q2

REPORT INFORMATION
  Report Type: 
  Country: None (occurrence: None)
  Receive Date: 20060612
  Receipt Date: 20060601
  Transmission Date: 20061013
  Serious: Yes (Death, Hospitalization)
  Sender: FDA-Public Use
  Company Number: NSADSS2002041590

PATIENT
  Sex: Female

DRUGS (2)
  1. REMICADE [Suspect]
     Route: 041
     Dates: start: 20010329
  2. REMICADE [Suspect]
     Indication: RHEUMATOID ARTHRITIS
     Route: 041
     Dates: start: 20010329

REACTIONS (5)
  - ARTERIOSCLEROSIS CORONARY ARTERY [None]
  - DIABETES MELLITUS [None]
  - PNEUMONIA PNEUMOCOCCAL [None]
  - RENAL FAILURE CHRONIC [None]
  - RESPIRATORY ARREST [None]
